FAERS Safety Report 4298555-3 (Version None)
Quarter: 2004Q1

REPORT INFORMATION
  Report Type: 
  Country: None (occurrence: None)
  Receive Date: 20040126
  Receipt Date: 20031022
  Transmission Date: 20041129
  Serious: No
  Sender: FDA-Public Use
  Company Number: USA031050561

PATIENT
  Age: 27 Year
  Sex: Male

DRUGS (3)
  1. STRATTERA [Suspect]
     Dosage: 100 MG/DAY
     Dates: start: 20030803
  2. SEROQUEL [Concomitant]
  3. VISTARIL (QUETIAPINE FUMARATE) [Concomitant]

REACTIONS (1)
  - DRUG SCREEN POSITIVE [None]
